FAERS Safety Report 7890177-8 (Version None)
Quarter: 2011Q4

REPORT INFORMATION
  Report Type: 
  Country: None (occurrence: None)
  Receive Date: 20111103
  Receipt Date: 20091116
  Transmission Date: 20120403
  Serious: Yes (Death, Hospitalization, Other)
  Sender: FDA-Public Use
  Company Number: PHHY2010TW12581

PATIENT

DRUGS (2)
  1. GLEEVEC [Suspect]
     Dosage: 2 PILLS PER DAY
  2. GLEEVEC [Suspect]
     Indication: GASTROINTESTINAL STROMAL TUMOUR
     Dosage: 4 PILLS PER DAY

REACTIONS (12)
  - NEOPLASM PROGRESSION [None]
  - BLOOD GLUCOSE DECREASED [None]
  - DEPRESSION [None]
  - DYSPNOEA [None]
  - DECREASED APPETITE [None]
  - DEATH [None]
  - OESOPHAGEAL DISORDER [None]
  - SOMNOLENCE [None]
  - PERICARDIAL EFFUSION [None]
  - SPEECH DISORDER [None]
  - MYALGIA [None]
  - HAEMOGLOBIN DECREASED [None]
